FAERS Safety Report 20860993 (Version 1)
Quarter: 2022Q2

REPORT INFORMATION
  Report Type: Spontaneous
  Country: US (occurrence: None)
  Receive Date: 20220520
  Receipt Date: 20220520
  Transmission Date: 20220721
  Serious: Yes (Disabling)
  Sender: FDA-Public Use
  Company Number: None

PATIENT
  Age: 35 Year
  Sex: Female
  Weight: 77.4 kg

DRUGS (5)
  1. CELEXA [Suspect]
     Active Substance: CITALOPRAM HYDROBROMIDE
     Indication: Depression
     Dosage: OTHER QUANTITY : 1 TABLET(S);?FREQUENCY : DAILY;?
     Route: 048
     Dates: end: 20220509
  2. fluticasone 50 MCG/ACT nasal spray drospirenone [Concomitant]
  3. ethinyl estradiol 3-0.03 MG tablet [Concomitant]
  4. omega 3 1000 MG CAPS [Concomitant]
  5. LORATADINE [Concomitant]
     Active Substance: LORATADINE

REACTIONS (1)
  - Eustachian tube dysfunction [None]

NARRATIVE: CASE EVENT DATE: 20180513
